FAERS Safety Report 6759106-4 (Version None)
Quarter: 2010Q2

REPORT INFORMATION
  Report Type: 
  Country: None (occurrence: None)
  Receive Date: 20100607
  Receipt Date: 20100601
  Transmission Date: 20101027
  Serious: Yes (Other)
  Sender: FDA-Public Use
  Company Number: US-B.I. PHARMACEUTICALS,INC./RIDGEFIELD-2010-BP-05991PF

PATIENT
  Sex: Female

DRUGS (4)
  1. SPIRIVA [Suspect]
  2. MEDICATION FOR THYROID [Concomitant]
     Indication: THYROID DISORDER
  3. BLOOD THINNER [Concomitant]
  4. MEDICATION FOR REST AT NIGHT [Concomitant]
     Indication: RESTLESSNESS

REACTIONS (8)
  - ANGIOPATHY [None]
  - CARDIAC DISORDER [None]
  - DIABETES MELLITUS [None]
  - HEART RATE INCREASED [None]
  - HYPERTENSION [None]
  - LIMB DISCOMFORT [None]
  - MUSCULOSKELETAL DISCOMFORT [None]
  - RENAL DISORDER [None]
